FAERS Safety Report 16207146 (Version 1)
Quarter: 2019Q2

REPORT INFORMATION
  Report Type: Spontaneous
  Country: US (occurrence: US)
  Receive Date: 20190417
  Receipt Date: 20190417
  Transmission Date: 20190711
  Serious: Yes (Other)
  Sender: FDA-Public Use
  Company Number: US-TORRENT-00007541

PATIENT
  Age: 78 Year
  Sex: Female
  Weight: 73 kg

DRUGS (4)
  1. LOSARTAN POTASSIUM. [Suspect]
     Active Substance: LOSARTAN POTASSIUM
     Indication: HYPERTENSION
     Dosage: UNKNOWN
     Dates: end: 201808
  2. LOSARTAN POTASSIUM HYDROCHOLOROTHZAIDE [Concomitant]
     Indication: HYPERTENSION
     Dosage: UNKNOWN
  3. CHOLINIDE  HCL [Concomitant]
     Indication: PRODUCT USED FOR UNKNOWN INDICATION
     Dosage: TWO TIMES A DAY
  4. HYDROLYZINE [Concomitant]
     Indication: PRODUCT USED FOR UNKNOWN INDICATION
     Dosage: DAILY

REACTIONS (3)
  - Dry throat [Recovered/Resolved]
  - Weight decreased [Unknown]
  - Dry mouth [Recovered/Resolved]
